FAERS Safety Report 5729064-X (Version None)
Quarter: 2008Q2

REPORT INFORMATION
  Report Type: 
  Country: None (occurrence: None)
  Receive Date: 20080501
  Receipt Date: 20080411
  Transmission Date: 20081010
  Serious: Yes (Hospitalization)
  Sender: FDA-Public Use
  Company Number: M-08-0385

PATIENT
  Age: 69 Year
  Sex: Female

DRUGS (8)
  1. KLOR-CON [Suspect]
     Indication: DIURETIC THERAPY
     Dosage: 20 MEQ, QD, PO
     Route: 048
     Dates: start: 20070201, end: 20080401
  2. KLOR-CON [Suspect]
     Indication: DIURETIC THERAPY
     Dosage: 10 MEQ, QD, PO
     Route: 048
     Dates: start: 20030101, end: 20070201
  3. HYDROCHLOROTHIAZIDE [Concomitant]
  4. PROPRANOLOL [Concomitant]
  5. PRAVACHOL [Concomitant]
  6. ASPIRIN [Concomitant]
  7. CENTRUM [Concomitant]
  8. CALCIUMN WITH VITAMIN D [Concomitant]

REACTIONS (7)
  - BLOOD POTASSIUM DECREASED [None]
  - CARDIAC FLUTTER [None]
  - CONSTIPATION [None]
  - HYPERTENSION [None]
  - MEDICATION RESIDUE [None]
  - PALPITATIONS [None]
  - TRANSIENT ISCHAEMIC ATTACK [None]
